FAERS Safety Report 9383062 (Version 1)
Quarter: 2013Q3

REPORT INFORMATION
  Report Type: Spontaneous
  Country: US (occurrence: US)
  Receive Date: 20130704
  Receipt Date: 20130704
  Transmission Date: 20140515
  Serious: No
  Sender: FDA-Public Use
  Company Number: US-009507513-1306USA012430

PATIENT
  Sex: Male

DRUGS (6)
  1. DULERA [Suspect]
     Indication: CHRONIC OBSTRUCTIVE PULMONARY DISEASE
     Dosage: 1 PUF, BID
     Route: 055
     Dates: start: 20130619
  2. TUDORZA [Concomitant]
  3. PROAIR (ALBUTEROL SULFATE) [Concomitant]
  4. SPIRIVA [Concomitant]
  5. ZOCOR [Concomitant]
  6. ZESTORETIC [Concomitant]

REACTIONS (2)
  - Dyspnoea [Unknown]
  - Fatigue [Unknown]
